FAERS Safety Report 20947387 (Version 1)
Quarter: 2022Q2

REPORT INFORMATION
  Report Type: Report from Study
  Country: US (occurrence: US)
  Receive Date: 20220610
  Receipt Date: 20220610
  Transmission Date: 20220720
  Serious: Yes (Hospitalization)
  Sender: FDA-Public Use
  Company Number: US-BIOGEN-2022BI01129825

PATIENT
  Sex: Female

DRUGS (2)
  1. TECFIDERA [Suspect]
     Active Substance: DIMETHYL FUMARATE
     Indication: Multiple sclerosis
     Dosage: TECFIDERA 120 MG (14)-240 MG (46) - ONE CAPSULE BY ORAL ROUTE DAILY FOR 30 DAYS
     Route: 048
     Dates: start: 20140303
  2. TECFIDERA [Suspect]
     Active Substance: DIMETHYL FUMARATE
     Route: 048
     Dates: start: 20210419

REACTIONS (1)
  - COVID-19 pneumonia [Not Recovered/Not Resolved]
